FAERS Safety Report 9231097 (Version 2)
Quarter: 2013Q2

REPORT INFORMATION
  Report Type: Spontaneous
  Country: CA (occurrence: CA)
  Receive Date: 20130415
  Receipt Date: 20130513
  Transmission Date: 20140414
  Serious: Yes (Other)
  Sender: FDA-Public Use
  Company Number: PHHY2013CA035455

PATIENT
  Sex: Female

DRUGS (1)
  1. ESTRADIOL SANDOZ [Suspect]
     Indication: MENOPAUSE
     Dosage: 50 UG, ON ONE SIDE OF THE BODY FOR 3 DAYS AND ON THE OTHER SIDE FOR 4 DAYS
     Route: 061
     Dates: end: 20130411

REACTIONS (4)
  - Erythema [Recovering/Resolving]
  - Application site erosion [Recovering/Resolving]
  - Urticaria [Recovering/Resolving]
  - Pruritus [Recovering/Resolving]
